FAERS Safety Report 9104337 (Version 2)
Quarter: 2013Q1

REPORT INFORMATION
  Report Type: Spontaneous
  Country: CN (occurrence: CN)
  Receive Date: 20130220
  Receipt Date: 20130227
  Transmission Date: 20140127
  Serious: Yes (Other)
  Sender: FDA-Public Use
  Company Number: PHHY2013CN014884

PATIENT
  Age: 30 Year
  Sex: Male

DRUGS (4)
  1. TACROLIMUS [Suspect]
     Indication: IMMUNOSUPPRESSION
  2. CORTICOSTEROIDS [Concomitant]
     Indication: IMMUNOSUPPRESSION
  3. MYCOPHENOLATE MOFETIL [Concomitant]
     Indication: IMMUNOSUPPRESSION
  4. PREDNISONE [Concomitant]
     Dosage: 10-20 MG PER DAY

REACTIONS (15)
  - Optic ischaemic neuropathy [Recovered/Resolved]
  - Blindness [Recovered/Resolved]
  - Visual acuity reduced [Recovered/Resolved]
  - Pupillary light reflex tests abnormal [Recovered/Resolved]
  - Optic neuritis [Recovered/Resolved]
  - Retinal haemorrhage [Recovered/Resolved]
  - Optic disc disorder [Recovered/Resolved]
  - Retinal vascular disorder [Recovered/Resolved]
  - Papilloedema [Recovered/Resolved]
  - Eye haemorrhage [Recovered/Resolved]
  - Optic atrophy [Recovered/Resolved]
  - Headache [Recovered/Resolved]
  - Posterior reversible encephalopathy syndrome [Recovered/Resolved]
  - Convulsion [Recovered/Resolved]
  - Hypertension [Recovered/Resolved]
